FAERS Safety Report 5371577-7 (Version None)
Quarter: 2007Q2

REPORT INFORMATION
  Report Type: 
  Country: None (occurrence: None)
  Receive Date: 20070625
  Receipt Date: 20070619
  Transmission Date: 20071010
  Serious: Yes (Death)
  Sender: FDA-Public Use
  Company Number: 2007SP012195

PATIENT
  Age: 69 Year
  Sex: Male

DRUGS (1)
  1. TEMODAR [Suspect]
     Indication: BRAIN NEOPLASM
     Dosage: 375 MG; QD; PO
     Route: 048

REACTIONS (3)
  - DISEASE PROGRESSION [None]
  - FALL [None]
  - PELVIC FRACTURE [None]
